FAERS Safety Report 9711468 (Version 1)
Quarter: 2013Q4

REPORT INFORMATION
  Report Type: Spontaneous
  Country: US (occurrence: US)
  Receive Date: 20131126
  Receipt Date: 20131126
  Transmission Date: 20140711
  Serious: Yes (Hospitalization)
  Sender: FDA-Public Use
  Company Number: US-BRISTOL-MYERS SQUIBB COMPANY-18754275

PATIENT
  Age: 76 Year
  Sex: Male
  Weight: 117.91 kg

DRUGS (3)
  1. BYDUREON [Suspect]
     Indication: TYPE 2 DIABETES MELLITUS
     Dosage: LAST DOSE ON 31MAR13,INJECTION
     Dates: start: 201212
  2. METFORMIN HCL [Suspect]
     Route: 048
  3. AMARYL [Suspect]
     Dosage: 2 TABLETS PO QAM AND 4 TABLETS PO QPM
     Route: 048

REACTIONS (3)
  - Abdominal pain upper [Unknown]
  - Blood glucose increased [Recovered/Resolved]
  - Diarrhoea [Unknown]
